FAERS Safety Report 8618032-6 (Version None)
Quarter: 2012Q3

REPORT INFORMATION
  Report Type: 
  Country: None (occurrence: None)
  Receive Date: 20120824
  Receipt Date: 20120207
  Transmission Date: 20120928
  Serious: No
  Sender: FDA-Public Use
  Company Number: US-ASTRAZENECA-2012SE07859

PATIENT
  Age: 65 Year
  Sex: Female
  Weight: 54.4 kg

DRUGS (1)
  1. SYMBICORT [Suspect]
     Indication: ASTHMA
     Dosage: 80/4.5MCG BID
     Route: 055
     Dates: start: 20120101

REACTIONS (2)
  - DRUG DOSE OMISSION [None]
  - ORAL FUNGAL INFECTION [None]
